FAERS Safety Report 5966465-9 (Version None)
Quarter: 2008Q4

REPORT INFORMATION
  Report Type: 
  Country: None (occurrence: None)
  Receive Date: 20081125
  Receipt Date: 20081113
  Transmission Date: 20090506
  Serious: Yes (Hospitalization)
  Sender: FDA-Public Use
  Company Number: NZ-ROCHE-596806

PATIENT
  Sex: Male

DRUGS (12)
  1. PEGASYS [Suspect]
     Dosage: FORM: PFS
     Route: 058
     Dates: start: 20080323
  2. RIBAVIRIN [Suspect]
     Dosage: DRUG : RBV
     Route: 048
     Dates: start: 20080323
  3. ZOPICLONE [Suspect]
     Indication: INSOMNIA
     Dosage: DRUG REPORTED AS:ZOPLICONE
     Route: 048
     Dates: start: 20080717
  4. ZOPICLONE [Suspect]
     Dosage: 15 MG NOCTE PRN
     Route: 048
     Dates: start: 20081022
  5. CITALOPRAM HYDROBROMIDE [Suspect]
     Indication: DEPRESSION
     Route: 048
  6. CITALOPRAM HYDROBROMIDE [Suspect]
     Route: 048
     Dates: start: 20080904
  7. CITALOPRAM HYDROBROMIDE [Suspect]
     Route: 048
     Dates: start: 20080916
  8. CITALOPRAM HYDROBROMIDE [Suspect]
     Route: 048
     Dates: start: 20081007
  9. CITALOPRAM HYDROBROMIDE [Suspect]
     Dosage: DOSAGE: 30 MG MANE
     Route: 048
     Dates: start: 20081113
  10. LORATADINE [Concomitant]
     Route: 048
  11. FOLIC ACID [Concomitant]
     Route: 048
  12. KETOTIFEN FUMARATE [Concomitant]
     Indication: COUGH
     Dosage: STRENGTH: 2.5-5 MG BD
     Route: 048
     Dates: start: 20080501

REACTIONS (3)
  - DEPRESSED MOOD [None]
  - GRAND MAL CONVULSION [None]
  - INSOMNIA [None]
